FAERS Safety Report 7678418-3 (Version None)
Quarter: 2011Q3

REPORT INFORMATION
  Report Type: 
  Country: None (occurrence: None)
  Receive Date: 20110811
  Receipt Date: 20110805
  Transmission Date: 20111222
  Serious: Yes (Death, Life-Threatening, Hospitalization, Other)
  Sender: FDA-Public Use
  Company Number: FR-ELI_LILLY_AND_COMPANY-FR201108001830

PATIENT
  Sex: Male
  Weight: 111 kg

DRUGS (6)
  1. ELOXATIN [Concomitant]
     Indication: ADENOCARCINOMA
     Dosage: 200 MG, QD
     Route: 042
     Dates: start: 20110315, end: 20110315
  2. FOLIC ACID [Concomitant]
     Dosage: UNK, UNKNOWN
     Route: 065
  3. PANTOPRAZOLE [Concomitant]
     Dosage: 20 MG, QD
     Route: 048
  4. METHYLPREDNISOLONE [Concomitant]
     Dosage: 60 MG, QD
     Route: 042
     Dates: start: 20110315, end: 20110315
  5. VITAMIN B-12 [Concomitant]
     Dosage: UNK, UNKNOWN
     Route: 065
  6. ALIMTA [Suspect]
     Indication: ADENOCARCINOMA
     Dosage: 1 G, UNKNOWN
     Route: 042
     Dates: start: 20110315, end: 20110315

REACTIONS (3)
  - PLATELET COUNT DECREASED [None]
  - AGRANULOCYTOSIS [None]
  - SEPTIC SHOCK [None]
